FAERS Safety Report 24920594 (Version 1)
Quarter: 2025Q1

REPORT INFORMATION
  Report Type: Report from Study
  Country: US (occurrence: US)
  Receive Date: 20250204
  Receipt Date: 20250204
  Transmission Date: 20250409
  Serious: No
  Sender: EXELIXIS
  Company Number: US-EXELIXIS-CABO-24074300

PATIENT
  Sex: Male
  Weight: 77.098 kg

DRUGS (4)
  1. CABOMETYX [Suspect]
     Active Substance: CABOZANTINIB S-MALATE
     Indication: Renal cancer
     Dosage: 60 MG, QD
     Route: 048
     Dates: start: 20240122
  2. CABOMETYX [Suspect]
     Active Substance: CABOZANTINIB S-MALATE
     Dosage: 20 MG, QD
     Route: 048
  3. HYDROCORTISONE AND ACETIC ACID [Concomitant]
     Active Substance: ACETIC ACID\HYDROCORTISONE
  4. PREDNISONE [Concomitant]
     Active Substance: PREDNISONE

REACTIONS (9)
  - Paraesthesia [Recovering/Resolving]
  - Pain [Recovering/Resolving]
  - Oral pain [Recovering/Resolving]
  - Glossodynia [Recovering/Resolving]
  - Weight decreased [Recovering/Resolving]
  - Dyspnoea [Recovering/Resolving]
  - Vomiting [Recovering/Resolving]
  - Fatigue [Recovering/Resolving]
  - Asthenia [Recovering/Resolving]
